FAERS Safety Report 6572225-0 (Version None)
Quarter: 2010Q1

REPORT INFORMATION
  Report Type: 
  Country: None (occurrence: None)
  Receive Date: 20100205
  Receipt Date: 20100129
  Transmission Date: 20100710
  Serious: Yes (Life-Threatening, Hospitalization, Other)
  Sender: FDA-Public Use
  Company Number: PHHO2009DE15835

PATIENT
  Sex: Female
  Weight: 78 kg

DRUGS (2)
  1. ICL670A ICL+ [Suspect]
     Indication: IRON OVERLOAD
     Dosage: 1500 MG, QD
     Route: 048
     Dates: start: 20090827, end: 20091211
  2. ICL670A ICL+ [Suspect]
     Dosage: 1500 MG, QD
     Route: 048
     Dates: start: 20091215

REACTIONS (6)
  - BACK PAIN [None]
  - BRONCHITIS [None]
  - COUGH [None]
  - DYSPNOEA [None]
  - MULTIPLE MYELOMA [None]
  - TRACHEAL STENOSIS [None]
